FAERS Safety Report 25578936 (Version 1)
Quarter: 2025Q3

REPORT INFORMATION
  Report Type: Spontaneous
  Country: EU (occurrence: EU)
  Receive Date: 20250718
  Receipt Date: 20250718
  Transmission Date: 20251020
  Serious: Yes (Disabling, Other)
  Sender: SANDOZ
  Company Number: EU-SANDOZ-SDZ2025FI050723

PATIENT
  Sex: Female
  Weight: 59 kg

DRUGS (1)
  1. ESTRADIOL [Suspect]
     Active Substance: ESTRADIOL
     Indication: Menopause
     Dosage: 37.5 UG, Q72H, 8, START DATE- 01-JUN-2025, STOP DATE-15-JUL-2025
     Route: 062
     Dates: start: 20250601, end: 20250715

REACTIONS (3)
  - Menopausal symptoms [Not Recovered/Not Resolved]
  - Product dose omission issue [Unknown]
  - Product adhesion issue [Unknown]

NARRATIVE: CASE EVENT DATE: 20250101
